FAERS Safety Report 16187149 (Version 1)
Quarter: 2019Q2

REPORT INFORMATION
  Report Type: Spontaneous
  Country: CN (occurrence: CN)
  Receive Date: 20190411
  Receipt Date: 20190411
  Transmission Date: 20190711
  Serious: Yes (Other)
  Sender: FDA-Public Use
  Company Number: CN-BAXTER-2019BAX007118

PATIENT
  Age: 53 Year
  Sex: Female
  Weight: 55 kg

DRUGS (3)
  1. DUMA (CREATINE PHOSPHATE) [Suspect]
     Active Substance: PHOSPHOCREATINE
     Indication: SUBARACHNOID HAEMORRHAGE
     Route: 041
     Dates: start: 20190212, end: 20190213
  2. DUMA (CREATINE PHOSPHATE) [Suspect]
     Active Substance: PHOSPHOCREATINE
     Route: 041
     Dates: start: 20190225, end: 20190225
  3. 0.9% SODIUM CHLORIDE INJECTION [Suspect]
     Active Substance: SODIUM CHLORIDE
     Indication: MEDICATION DILUTION
     Route: 041
     Dates: start: 20190212, end: 20190213

REACTIONS (2)
  - Chills [Recovering/Resolving]
  - Hyperpyrexia [Recovering/Resolving]

NARRATIVE: CASE EVENT DATE: 20190213
